FAERS Safety Report 4658506-6 (Version None)
Quarter: 2005Q2

REPORT INFORMATION
  Report Type: 
  Country: None (occurrence: None)
  Receive Date: 20050510
  Receipt Date: 20050510
  Transmission Date: 20051028
  Serious: Yes (Hospitalization)
  Sender: FDA-Public Use
  Company Number: None

PATIENT
  Age: 35 Year
  Sex: Male
  Weight: 81.6475 kg

DRUGS (1)
  1. EFAVIRENZ [Suspect]
     Indication: RETROVIRAL INFECTION
     Dosage: 600MG  QD    ORAL
     Route: 048
     Dates: start: 20040902, end: 20040906

REACTIONS (3)
  - FACE OEDEMA [None]
  - PRURITUS [None]
  - RASH ERYTHEMATOUS [None]
